FAERS Safety Report 8585665-5 (Version None)
Quarter: 2012Q3

REPORT INFORMATION
  Report Type: 
  Country: None (occurrence: None)
  Receive Date: 20120810
  Receipt Date: 20120807
  Transmission Date: 20120928
  Serious: Yes (Other)
  Sender: FDA-Public Use
  Company Number: US-AMGEN-USASP2011019284

PATIENT
  Age: 38 Year
  Sex: Female

DRUGS (1)
  1. ENBREL [Suspect]
     Indication: PSORIATIC ARTHROPATHY
     Dosage: 50 MG, QWK
     Dates: start: 20080515

REACTIONS (8)
  - MIGRAINE [None]
  - URINARY TRACT INFECTION [None]
  - GROIN PAIN [None]
  - LYMPHADENOPATHY [None]
  - CERVICAL DYSPLASIA [None]
  - NECK PAIN [None]
  - PAIN IN EXTREMITY [None]
  - PAPILLOMA VIRAL INFECTION [None]
